FAERS Safety Report 10453370 (Version 1)
Quarter: 2014Q3

REPORT INFORMATION
  Report Type: Spontaneous
  Country: IT (occurrence: IT)
  Receive Date: 20140915
  Receipt Date: 20140915
  Transmission Date: 20150326
  Serious: Yes (Other)
  Sender: FDA-Public Use
  Company Number: PHHY2014IT115058

PATIENT
  Age: 26 Year
  Sex: Female

DRUGS (1)
  1. TRIAMCINOLONE [Suspect]
     Active Substance: TRIAMCINOLONE
     Indication: ALOPECIA AREATA
     Dosage: 3 INFILTRATIONS OF 1 ML
     Route: 026

REACTIONS (7)
  - Alopecia scarring [Recovered/Resolved]
  - Alopecia [Recovered/Resolved]
  - Skin dystrophy [Recovering/Resolving]
  - Soft tissue atrophy [Recovering/Resolving]
  - Skin discolouration [Recovering/Resolving]
  - Scar [Recovering/Resolving]
  - Skin atrophy [Recovering/Resolving]
